FAERS Safety Report 22018938 (Version 3)
Quarter: 2023Q2

REPORT INFORMATION
  Report Type: Spontaneous
  Country: FR (occurrence: FR)
  Receive Date: 20230222
  Receipt Date: 20230413
  Transmission Date: 20230721
  Serious: Yes (Life-Threatening, Hospitalization, Other)
  Sender: FDA-Public Use
  Company Number: FR-CELLTRION INC.-2023FR003654

PATIENT

DRUGS (5)
  1. RITUXIMAB [Suspect]
     Active Substance: RITUXIMAB
     Indication: Marginal zone lymphoma
     Dosage: 375 MG/M2 (DOSAGE TEXT: ON DAY1)
     Route: 042
  2. RITUXIMAB [Suspect]
     Active Substance: RITUXIMAB
     Dosage: 1400 MG (DOSAGE TEXT: ON DAYS 8-15-21 FOR THE FIRST CYCLE, THEN 1400 MG SUBCUTANEOUSLY EVERY 28 DAYS
     Route: 058
     Dates: start: 20210705
  3. IMBRUVICA [Suspect]
     Active Substance: IBRUTINIB
     Indication: Marginal zone lymphoma
     Dosage: 560 MG, EVERY 1 DAY (DOSAGE TEXT: 5 CYCLES)
     Route: 048
     Dates: start: 202102, end: 202107
  4. LEVOFLOXACIN [Concomitant]
     Active Substance: LEVOFLOXACIN
     Indication: Product used for unknown indication
  5. CEFTRIAXONE [Concomitant]
     Active Substance: CEFTRIAXONE
     Indication: Product used for unknown indication

REACTIONS (3)
  - Haemolytic anaemia [Recovered/Resolved]
  - Disseminated strongyloidiasis [Recovered/Resolved]
  - Drug effective for unapproved indication [Unknown]
